FAERS Safety Report 15756787 (Version 1)
Quarter: 2018Q4

REPORT INFORMATION
  Report Type: Spontaneous
  Country: US (occurrence: US)
  Receive Date: 20181224
  Receipt Date: 20181224
  Transmission Date: 20190205
  Serious: No
  Sender: FDA-Public Use
  Company Number: US-GLAXOSMITHKLINE-US2018226664

PATIENT
  Age: 78 Year
  Sex: Male

DRUGS (3)
  1. FLUTICASONE PROPIONATE NASAL SPRAY [Concomitant]
     Active Substance: FLUTICASONE PROPIONATE
  2. ADVAIR DISKUS [Suspect]
     Active Substance: FLUTICASONE PROPIONATE\SALMETEROL XINAFOATE
     Indication: ASTHMA
     Dosage: 1 PUFF(S), BID
     Route: 055
  3. ADVAIR HFA [Suspect]
     Active Substance: FLUTICASONE PROPIONATE\SALMETEROL XINAFOATE
     Indication: ASTHMA
     Dosage: 1 PUFF(S), BID
     Route: 055

REACTIONS (6)
  - Product dose omission [Unknown]
  - Prescription drug used without a prescription [Unknown]
  - Expired product administered [Unknown]
  - Underdose [Unknown]
  - Wrong technique in device usage process [Unknown]
  - Peak expiratory flow rate decreased [Unknown]
